FAERS Safety Report 14141246 (Version 4)
Quarter: 2018Q1

REPORT INFORMATION
  Report Type: Report from Study
  Country: US (occurrence: US)
  Receive Date: 20171030
  Receipt Date: 20180314
  Transmission Date: 20180508
  Serious: Yes (Other)
  Sender: FDA-Public Use
  Company Number: US-PFIZER INC-2017419344

PATIENT
  Age: 64 Year
  Sex: Female

DRUGS (1)
  1. IBRANCE [Suspect]
     Active Substance: PALBOCICLIB
     Indication: BREAST CANCER
     Dosage: 125 MG, DAILY
     Route: 048
     Dates: start: 20170922

REACTIONS (7)
  - Alopecia [Unknown]
  - Bone marrow failure [Unknown]
  - Anaemia [Unknown]
  - Salivary hypersecretion [Unknown]
  - Stomatitis [Unknown]
  - Leukopenia [Unknown]
  - Fatigue [Unknown]

NARRATIVE: CASE EVENT DATE: 201709
